FAERS Safety Report 18487385 (Version 1)
Quarter: 2020Q4

REPORT INFORMATION
  Report Type: Spontaneous
  Country: US (occurrence: US)
  Receive Date: 20201110
  Receipt Date: 20201110
  Transmission Date: 20210114
  Serious: No
  Sender: FDA-Public Use
  Company Number: US-PERRIGO-20US002310

PATIENT
  Sex: Female

DRUGS (2)
  1. UNISOM SLEEPTABS [Suspect]
     Active Substance: DOXYLAMINE SUCCINATE
     Indication: INSOMNIA
     Dosage: 12.5 MG, NIGHTLY
     Route: 048
     Dates: start: 201912, end: 20200204
  2. UNISOM SLEEPTABS [Suspect]
     Active Substance: DOXYLAMINE SUCCINATE
     Dosage: 12.5 MG, TWICE
     Route: 048
     Dates: start: 20200205, end: 20200205

REACTIONS (6)
  - Lethargy [Unknown]
  - Dependence [Unknown]
  - Therapeutic product effect decreased [Unknown]
  - Incorrect product administration duration [Unknown]
  - Fatigue [Unknown]
  - Underdose [Unknown]

NARRATIVE: CASE EVENT DATE: 201912
